FAERS Safety Report 4369574-3 (Version None)
Quarter: 2004Q2

REPORT INFORMATION
  Report Type: 
  Country: None (occurrence: None)
  Receive Date: 20040603
  Receipt Date: 20040524
  Transmission Date: 20050107
  Serious: Yes (Hospitalization)
  Sender: FDA-Public Use
  Company Number: PHEH2004US05737

PATIENT
  Age: 34 Year
  Sex: Male
  Weight: 59 kg

DRUGS (7)
  1. ZOMETA [Suspect]
     Indication: METASTASES TO BONE
     Dosage: 4 MG EVERY MONTH
     Route: 042
     Dates: start: 20020201
  2. IRESSA [Concomitant]
     Dosage: 250 MG, QD
     Route: 048
  3. LOVENOX [Concomitant]
     Dosage: 90 MG, QD
     Route: 058
  4. COUMADIN [Concomitant]
  5. TAXOL + CARBOPLATIN [Concomitant]
  6. GEMZAR [Concomitant]
  7. TAXOTERE [Concomitant]

REACTIONS (3)
  - ARTHRALGIA [None]
  - ASEPTIC NECROSIS BONE [None]
  - SURGERY [None]
